FAERS Safety Report 10722702 (Version 1)
Quarter: 2015Q1

REPORT INFORMATION
  Report Type: Spontaneous
  Country: HR (occurrence: HR)
  Receive Date: 20150120
  Receipt Date: 20150120
  Transmission Date: 20150721
  Serious: Yes (Hospitalization)
  Sender: FDA-Public Use
  Company Number: HR-GLAXOSMITHKLINE INC.-HR2015005589

PATIENT

DRUGS (5)
  1. PARACETAMOL AND TRAMADOL HYDROCHLORIDE [Concomitant]
     Indication: PAIN
     Dosage: 1 DF, QD
     Route: 048
     Dates: start: 201403
  2. DUROGESIC [Suspect]
     Active Substance: FENTANYL
     Indication: PAIN
     Dosage: 1.2 MG, UNK
     Route: 062
     Dates: start: 201404
  3. BETA GLUCAN [Concomitant]
     Indication: IMMUNE ENHANCEMENT THERAPY
     Dosage: 1000 MG, UNK
     Route: 048
     Dates: start: 201310
  4. EUTHYROX [Concomitant]
     Active Substance: LEVOTHYROXINE SODIUM
     Indication: HYPOTHYROIDISM
     Route: 048
     Dates: start: 2004
  5. HYCAMTIN [Suspect]
     Active Substance: TOPOTECAN HYDROCHLORIDE
     Indication: SMALL CELL LUNG CANCER
     Dosage: 1 MG, QD
     Route: 048
     Dates: start: 20140413, end: 20140417

REACTIONS (12)
  - Cough [Recovering/Resolving]
  - Muscular weakness [Recovering/Resolving]
  - Decreased appetite [Recovering/Resolving]
  - Oral discomfort [Recovering/Resolving]
  - Diarrhoea [Recovering/Resolving]
  - Somnolence [Recovering/Resolving]
  - Gait disturbance [Recovering/Resolving]
  - Constipation [Recovering/Resolving]
  - Pyrexia [Recovering/Resolving]
  - Erythema [Recovering/Resolving]
  - Dry mouth [Recovering/Resolving]
  - Confusional state [Recovering/Resolving]

NARRATIVE: CASE EVENT DATE: 20140420
